FAERS Safety Report 5821259-X (Version None)
Quarter: 2008Q3

REPORT INFORMATION
  Report Type: 
  Country: None (occurrence: None)
  Receive Date: 20080722
  Receipt Date: 20080722
  Transmission Date: 20090109
  Serious: Yes (Hospitalization)
  Sender: FDA-Public Use
  Company Number: None

PATIENT
  Age: 23 Year
  Sex: Female
  Weight: 90.9 kg

DRUGS (1)
  1. BUPROPION XL 150 TEVA [Suspect]
     Indication: DEPRESSION
     Dosage: 150 MG TWICE DAILY PO
     Route: 048

REACTIONS (2)
  - BLOOD CREATININE INCREASED [None]
  - MUSCULAR WEAKNESS [None]
